FAERS Safety Report 24751890 (Version 2)
Quarter: 2025Q1

REPORT INFORMATION
  Report Type: Spontaneous
  Country: JP (occurrence: JP)
  Receive Date: 20241219
  Receipt Date: 20250211
  Transmission Date: 20250409
  Serious: Yes (Other)
  Sender: ALEXION PHARMACEUTICALS
  Company Number: JP-ASTRAZENECA-240108122_032620_P_1

PATIENT
  Age: 45 Year
  Weight: 67 kg

DRUGS (7)
  1. FASENRA [Suspect]
     Active Substance: BENRALIZUMAB
     Indication: Asthma
  2. FLUTICASONE FUROATE [Suspect]
     Active Substance: FLUTICASONE FUROATE
     Indication: Asthma
     Dosage: 1 DOSAGE FORM, QD
  3. SPIRIVA [Suspect]
     Active Substance: TIOTROPIUM BROMIDE MONOHYDRATE
     Indication: Asthma
     Dosage: 2 DOSAGE FORM, QD
  4. OMALIZUMAB [Concomitant]
     Active Substance: OMALIZUMAB
     Route: 065
  5. DUPILUMAB [Concomitant]
     Active Substance: DUPILUMAB
     Route: 065
  6. THEOPHYLLINE [Concomitant]
     Active Substance: THEOPHYLLINE
     Route: 065
  7. FASENRA [Suspect]
     Active Substance: BENRALIZUMAB
     Indication: Asthma

REACTIONS (4)
  - Asthma [Recovering/Resolving]
  - Respiratory tract infection [Unknown]
  - Oropharyngeal pain [Unknown]
  - Nasopharyngitis [Unknown]
